FAERS Safety Report 4888293-8 (Version None)
Quarter: 2006Q1

REPORT INFORMATION
  Report Type: 
  Country: None (occurrence: None)
  Receive Date: 20060123
  Receipt Date: 20051209
  Transmission Date: 20060701
  Serious: Yes (Hospitalization, Other)
  Sender: FDA-Public Use
  Company Number: CA-BRISTOL-MYERS SQUIBB COMPANY-13214085

PATIENT
  Age: 40 Year
  Sex: Female

DRUGS (2)
  1. SINEMET [Suspect]
     Indication: PARKINSON'S DISEASE
     Dates: start: 20040101
  2. MIRAPEX [Concomitant]

REACTIONS (3)
  - ABORTION SPONTANEOUS [None]
  - ECTOPIC PREGNANCY [None]
  - SALPINGOPLASTY [None]
